FAERS Safety Report 4344872-8 (Version None)
Quarter: 2004Q2

REPORT INFORMATION
  Report Type: 
  Country: None (occurrence: None)
  Receive Date: 20040420
  Receipt Date: 20040407
  Transmission Date: 20050107
  Serious: Yes (Hospitalization)
  Sender: FDA-Public Use
  Company Number: 04P-163-0256244

PATIENT
  Age: 35 Year
  Sex: Male
  Weight: 68.0396 kg

DRUGS (5)
  1. DEPAKOTE [Suspect]
     Indication: CONVULSION
     Dosage: 500 MG, 3 IN 1 D, PER ORAL
     Route: 048
     Dates: start: 20040317
  2. PHENYTOIN SODIUM [Concomitant]
  3. LEVOTHYROXINE SODIUM [Concomitant]
  4. PARAVASTATIN SODIUM [Concomitant]
  5. ASPIRIN [Concomitant]

REACTIONS (6)
  - ASPIRATION [None]
  - ASTHENIA [None]
  - DYSPNOEA [None]
  - LETHARGY [None]
  - STRIDOR [None]
  - THROAT TIGHTNESS [None]
